FAERS Safety Report 22608988 (Version 1)
Quarter: 2023Q2

REPORT INFORMATION
  Report Type: Spontaneous
  Country: JP (occurrence: JP)
  Receive Date: 20230616
  Receipt Date: 20230616
  Transmission Date: 20230721
  Serious: Yes (Hospitalization)
  Sender: FDA-Public Use
  Company Number: JP-NBI-BJ202309852

PATIENT
  Age: 92 Year
  Sex: Female

DRUGS (3)
  1. JARDIANCE [Suspect]
     Active Substance: EMPAGLIFLOZIN
     Indication: Cardiac failure chronic
     Route: 048
     Dates: start: 20230510
  2. SPIRONOLACTONE [Suspect]
     Active Substance: SPIRONOLACTONE
     Indication: Cardiac failure chronic
     Route: 048
  3. AZOSEMIDE [Suspect]
     Active Substance: AZOSEMIDE
     Indication: Cardiac failure chronic
     Route: 048

REACTIONS (4)
  - Physical deconditioning [Recovering/Resolving]
  - Dysphagia [Recovering/Resolving]
  - Fall [Unknown]
  - Pneumonia [Unknown]

NARRATIVE: CASE EVENT DATE: 20230609
